FAERS Safety Report 4354705-1 (Version None)
Quarter: 2004Q2

REPORT INFORMATION
  Report Type: 
  Country: None (occurrence: None)
  Receive Date: 20040503
  Receipt Date: 20040416
  Transmission Date: 20050107
  Serious: Yes (Hospitalization)
  Sender: FDA-Public Use
  Company Number: 196205

PATIENT
  Age: 60 Year
  Sex: Male

DRUGS (1)
  1. AVONEX [Suspect]
     Indication: MULTIPLE SCLEROSIS
     Dosage: 30 MCG QW IM
     Route: 030
     Dates: start: 20030522

REACTIONS (7)
  - BALANCE DISORDER [None]
  - BLOOD PRESSURE DECREASED [None]
  - CORONARY ARTERY SURGERY [None]
  - HEART RATE DECREASED [None]
  - INFLUENZA LIKE ILLNESS [None]
  - PAIN [None]
  - WALKING AID USER [None]
